FAERS Safety Report 9943327 (Version 1)
Quarter: 2014Q1

REPORT INFORMATION
  Report Type: Spontaneous
  Country: US (occurrence: US)
  Receive Date: 20140303
  Receipt Date: 20140303
  Transmission Date: 20141002
  Serious: Yes (Other)
  Sender: FDA-Public Use
  Company Number: CHPA2014US003074

PATIENT
  Age: 70 Year
  Sex: Female

DRUGS (2)
  1. EXCEDRIN ES [Suspect]
     Indication: HEADACHE
     Dosage: 2 DF, PRN
     Route: 048
  2. EXCEDRIN EXTRA STRENGTH [Concomitant]
     Indication: HEADACHE
     Dosage: 2 DF, PRN

REACTIONS (4)
  - Neoplasm malignant [Recovered/Resolved]
  - Thyroid disorder [Unknown]
  - Salivary gland disorder [Unknown]
  - Dry mouth [Unknown]
